FAERS Safety Report 15455572 (Version 1)
Quarter: 2018Q4

REPORT INFORMATION
  Report Type: Spontaneous
  Country: NG (occurrence: NG)
  Receive Date: 20181002
  Receipt Date: 20181002
  Transmission Date: 20190204
  Serious: Yes (Hospitalization)
  Sender: FDA-Public Use
  Company Number: NG-IMPAX LABORATORIES, INC-2018-IPXL-03199

PATIENT
  Age: 16 Year
  Sex: Female

DRUGS (2)
  1. PARACETAMOL [Suspect]
     Active Substance: ACETAMINOPHEN
     Indication: PYREXIA
     Dosage: 2 TABLETS, UNK
     Route: 065
  2. CHLOROQUINE PHOSPHATE. [Suspect]
     Active Substance: CHLOROQUINE PHOSPHATE
     Indication: PYREXIA
     Dosage: 2 TABLETS, UNK
     Route: 065

REACTIONS (4)
  - Urinary tract infection [Unknown]
  - Dysarthria [Recovering/Resolving]
  - Dyskinesia [Recovering/Resolving]
  - Torticollis [Recovering/Resolving]
